FAERS Safety Report 5384172-0 (Version None)
Quarter: 2007Q3

REPORT INFORMATION
  Report Type: 
  Country: None (occurrence: None)
  Receive Date: 20070711
  Receipt Date: 20070709
  Transmission Date: 20080115
  Serious: Yes (Death)
  Sender: FDA-Public Use
  Company Number: A0611685A

PATIENT
  Age: 22 Year
  Sex: Male
  Weight: 68.2 kg

DRUGS (1)
  1. WELLBUTRIN XL [Suspect]
     Indication: DRUG USE FOR UNKNOWN INDICATION
     Route: 048
     Dates: start: 20050610, end: 20050601

REACTIONS (3)
  - ASPHYXIA [None]
  - CARDIAC ARREST [None]
  - COMPLETED SUICIDE [None]
